FAERS Safety Report 19476550 (Version 1)
Quarter: 2021Q2

REPORT INFORMATION
  Report Type: Spontaneous
  Country: DE (occurrence: DE)
  Receive Date: 20210630
  Receipt Date: 20210630
  Transmission Date: 20210717
  Serious: Yes (Hospitalization)
  Sender: FDA-Public Use
  Company Number: DE-ACCORD-229883

PATIENT
  Age: 63 Year
  Sex: Female
  Weight: 56 kg

DRUGS (4)
  1. APIXABAN [Suspect]
     Active Substance: APIXABAN
     Indication: PRODUCT USED FOR UNKNOWN INDICATION
     Dosage: 5 MG, 1?0?1?0, TABLETS
  2. BUDESONIDE/FORMOTEROL [Concomitant]
     Active Substance: BUDESONIDE\FORMOTEROL
     Dosage: 160/4.5 UG, 1?0?1?0, METERED DOSE INHALER
  3. RAMIPRIL. [Concomitant]
     Active Substance: RAMIPRIL
     Dosage: 1.25 MG, 1?0?0?0, TABLET
  4. POTASSIUM VERLA [Concomitant]
     Dosage: GRANULES

REACTIONS (3)
  - Dyspnoea [Unknown]
  - Palpitations [Unknown]
  - Tachycardia [Unknown]
